FAERS Safety Report 21093733 (Version 1)
Quarter: 2022Q3

REPORT INFORMATION
  Report Type: Spontaneous
  Country: US (occurrence: US)
  Receive Date: 20220718
  Receipt Date: 20220718
  Transmission Date: 20221026
  Serious: Yes (Death, Other)
  Sender: FDA-Public Use
  Company Number: US-SUN PHARMACEUTICAL INDUSTRIES LTD-2022R1-344645

PATIENT
  Age: 69 Year
  Sex: Male

DRUGS (5)
  1. LEUCOVORIN CALCIUM [Suspect]
     Active Substance: LEUCOVORIN CALCIUM
     Indication: Adenocarcinoma
     Dosage: 400 MILLIGRAM/SQ. METER
     Route: 040
  2. OXALIPLATIN [Suspect]
     Active Substance: OXALIPLATIN
     Indication: Adenocarcinoma
     Dosage: 85 MILLIGRAM/SQ. METER
     Route: 042
  3. OXALIPLATIN [Suspect]
     Active Substance: OXALIPLATIN
     Dosage: 65 MILLIGRAM/SQ. METER
     Route: 042
  4. FLUOROURACIL [Suspect]
     Active Substance: FLUOROURACIL
     Indication: Adenocarcinoma
     Dosage: 400 MILLIGRAM/SQ. METER, ON DAY 1
     Route: 040
  5. FLUOROURACIL [Suspect]
     Active Substance: FLUOROURACIL
     Dosage: 2400 MILLIGRAM/SQ. METER, IV INFUSION OVER 46 HOURS, EVERY 14 DAYS
     Route: 065

REACTIONS (2)
  - Diffuse alveolar damage [Fatal]
  - Pulmonary toxicity [Unknown]
